FAERS Safety Report 13466680 (Version 1)
Quarter: 2017Q2

REPORT INFORMATION
  Report Type: Spontaneous
  Country: US (occurrence: US)
  Receive Date: 20170421
  Receipt Date: 20170421
  Transmission Date: 20170830
  Serious: No
  Sender: FDA-Public Use
  Company Number: US-TEVA-713776ACC

PATIENT
  Age: 65 Year
  Sex: Female
  Weight: 42.68 kg

DRUGS (1)
  1. IBANDONATE SODIUM TABLETS [Suspect]
     Active Substance: IBANDRONIC ACID
     Indication: OSTEOPOROSIS
     Dates: start: 201607

REACTIONS (2)
  - Diarrhoea [Unknown]
  - Back pain [Unknown]

NARRATIVE: CASE EVENT DATE: 2016
